FAERS Safety Report 21961706 (Version 1)
Quarter: 2023Q1

REPORT INFORMATION
  Report Type: Report from Study
  Country: US (occurrence: US)
  Receive Date: 20230207
  Receipt Date: 20230207
  Transmission Date: 20230417
  Serious: Yes (Other)
  Sender: FDA-Public Use
  Company Number: US-ABBVIE-4293804

PATIENT
  Sex: Female

DRUGS (1)
  1. HUMIRA [Suspect]
     Active Substance: ADALIMUMAB
     Indication: Hidradenitis
     Dosage: CITRATE FREE?START DATE- MAY OR JUN 2021
     Route: 058
     Dates: start: 2021

REACTIONS (3)
  - Dermal cyst [Recovering/Resolving]
  - Dermal cyst [Recovering/Resolving]
  - Intervertebral disc operation [Recovering/Resolving]

NARRATIVE: CASE EVENT DATE: 20210101
